FAERS Safety Report 8129377-0 (Version None)
Quarter: 2012Q1

REPORT INFORMATION
  Report Type: 
  Country: None (occurrence: None)
  Receive Date: 20120210
  Receipt Date: 20120201
  Transmission Date: 20120608
  Serious: Yes (Hospitalization)
  Sender: FDA-Public Use
  Company Number: JP-COVIDIEN/TYCO HEALTHCARE/MALLINCKRODT-T201200567

PATIENT
  Sex: Female

DRUGS (1)
  1. METHADONE HCL [Suspect]
     Indication: CANCER PAIN
     Dosage: 50 MG, QD
     Route: 048
     Dates: start: 20110819, end: 20120201

REACTIONS (1)
  - GENERAL PHYSICAL HEALTH DETERIORATION [None]
